FAERS Safety Report 8540402-5 (Version None)
Quarter: 2012Q3

REPORT INFORMATION
  Report Type: 
  Country: None (occurrence: None)
  Receive Date: 20120726
  Receipt Date: 20110407
  Transmission Date: 20120928
  Serious: No
  Sender: FDA-Public Use
  Company Number: US-ASTRAZENECA-2011SE20262

PATIENT
  Age: 50 Year
  Sex: Female
  Weight: 64 kg

DRUGS (11)
  1. ZOLOFT [Concomitant]
  2. KLONOPIN [Concomitant]
  3. POTASSIUM CHLORIDE [Concomitant]
  4. LASIX [Concomitant]
  5. SEROQUEL [Suspect]
     Indication: RELAXATION THERAPY
     Route: 048
  6. CARBATROL [Concomitant]
  7. BENTYL [Concomitant]
  8. NEURONTIN [Concomitant]
  9. FLEXERIL [Concomitant]
  10. AMBIEN [Concomitant]
  11. SYNTHROID [Concomitant]

REACTIONS (1)
  - PAIN IN EXTREMITY [None]
